FAERS Safety Report 8290395-3 (Version None)
Quarter: 2012Q2

REPORT INFORMATION
  Report Type: 
  Country: None (occurrence: None)
  Receive Date: 20120417
  Receipt Date: 20120410
  Transmission Date: 20120825
  Serious: Yes (Death, Hospitalization, Other)
  Sender: FDA-Public Use
  Company Number: NL-AMGEN-NLDSP2012010213

PATIENT
  Age: 54 Year

DRUGS (29)
  1. FENTANYL [Concomitant]
     Dosage: 4 MG, UNK
     Dates: start: 20051122
  2. MORPHINE [Concomitant]
     Dosage: 50 MG, UNK
     Dates: start: 20040101
  3. SCOPODERM                          /00008701/ [Concomitant]
     Dosage: 1.5 MG, UNK
     Dates: start: 20051211
  4. TEMAZEPAM [Concomitant]
     Dosage: 10 MG, UNK
     Dates: start: 20051104
  5. GEMZAR [Concomitant]
     Dosage: 150 MG, UNK
     Dates: start: 20051101, end: 20060105
  6. ACETAMINOPHEN [Concomitant]
     Dosage: 400 MG, UNK
     Dates: start: 20040101
  7. RAMIPRIL [Concomitant]
     Dosage: 2.5 MG, UNK
  8. LEVOMEPROMAZINE [Concomitant]
     Dosage: 50 MG, UNK
     Dates: start: 20060109, end: 20060113
  9. MIRTAZAPINE [Concomitant]
     Dosage: 15 MG, UNK
     Dates: start: 20051114
  10. DIPYRIDAMOL [Concomitant]
     Dosage: 300 MG, UNK
  11. ARANESP [Suspect]
     Indication: PRODUCT USED FOR UNKNOWN INDICATION
     Dosage: 500 MUG, Q3WK
     Dates: start: 20051203, end: 20060106
  12. CISPLATIN [Concomitant]
     Dosage: 2300 MG, UNK
     Dates: start: 20051101, end: 20060105
  13. ATORVASTATIN [Concomitant]
     Dosage: 10 MG, UNK
  14. FOLIC ACID [Concomitant]
     Dosage: UNK
     Dates: start: 20051024
  15. ONDANSETRON [Concomitant]
     Dosage: 16 MG, UNK
     Dates: start: 20051103
  16. PREDNISONE [Concomitant]
     Dosage: 15 MG, UNK
     Dates: start: 20051104
  17. VITAMIN B12                        /00056201/ [Concomitant]
     Dosage: UNK
     Dates: start: 20051024, end: 20060104
  18. APREPITANT [Concomitant]
     Dosage: 125 MG, UNK
     Dates: start: 20060105, end: 20060105
  19. CARBASALATE [Concomitant]
     Dosage: 30 MG, UNK
     Dates: start: 20050905
  20. POLYETHYLENE GLYCOL [Concomitant]
     Dosage: UNK
     Dates: start: 20051020
  21. METOCLOPRAMIDE [Concomitant]
     Dosage: 30 MG, UNK
     Dates: start: 20040101
  22. PAROXETINE [Concomitant]
     Dosage: 20 MG, UNK
     Dates: start: 20040101
  23. MAALOX                             /00082501/ [Concomitant]
  24. GRANISETRON [Concomitant]
     Dosage: 2 MG, UNK
     Dates: start: 20051122
  25. OXYCODONE HCL [Concomitant]
     Dosage: 5 MG, PRN
     Dates: start: 20051111
  26. RANITIDINE [Concomitant]
     Dosage: 300 MG, UNK
     Dates: start: 20040101
  27. MAGNESIUM HYDROXIDE TAB [Concomitant]
     Dosage: UNK
  28. VITAMIN TAB [Concomitant]
     Dosage: UNK
  29. PANTOPRAZOLE [Concomitant]
     Dosage: 40 MG, UNK

REACTIONS (7)
  - DEHYDRATION [None]
  - OESOPHAGITIS [None]
  - DECREASED APPETITE [None]
  - DEATH [None]
  - NAUSEA [None]
  - TOXICITY TO VARIOUS AGENTS [None]
  - DYSPHAGIA [None]
